FAERS Safety Report 10226994 (Version 1)
Quarter: 2014Q2

REPORT INFORMATION
  Report Type: Report from Study
  Country: US (occurrence: US)
  Receive Date: 20140610
  Receipt Date: 20140610
  Transmission Date: 20141212
  Serious: Yes (Hospitalization)
  Sender: FDA-Public Use
  Company Number: US-ROCHE-1410801

PATIENT
  Age: 62 Year
  Sex: Female

DRUGS (17)
  1. TOCILIZUMAB [Suspect]
     Indication: RHEUMATOID ARTHRITIS
     Dosage: LAST DOSE PRIOR TO SAE 12/JUL/2013
     Route: 042
     Dates: start: 20130322
  2. TOCILIZUMAB [Suspect]
     Indication: RHEUMATOID ARTHRITIS
  3. PREDNISONE [Concomitant]
     Route: 048
     Dates: start: 20130311
  4. METHOTREXATE [Concomitant]
     Indication: RHEUMATOID ARTHRITIS
     Route: 048
     Dates: start: 20121221
  5. TRAZODONE [Concomitant]
     Indication: DEPRESSION
     Route: 048
     Dates: start: 20120301
  6. BUPROPION [Concomitant]
     Indication: DEPRESSION
     Route: 048
     Dates: start: 20120514
  7. SERTRALINE [Concomitant]
     Indication: DEPRESSION
     Route: 048
     Dates: start: 20130213, end: 20130715
  8. SERTRALINE [Concomitant]
     Route: 048
     Dates: start: 20130715
  9. ALBUTEROL [Concomitant]
     Indication: ASTHMA
     Route: 065
     Dates: start: 20120514
  10. TIOTROPIUM BROMIDE [Concomitant]
     Indication: ASTHMA
     Route: 065
     Dates: start: 20120514
  11. RANITIDINE HCL [Concomitant]
     Indication: GASTROOESOPHAGEAL REFLUX DISEASE
     Route: 048
     Dates: start: 20130207
  12. PLAQUENIL [Concomitant]
     Indication: RHEUMATOID ARTHRITIS
     Route: 048
     Dates: start: 20130216
  13. FOSAMAX [Concomitant]
     Indication: RHEUMATOID ARTHRITIS
     Route: 048
     Dates: start: 20090812, end: 20100908
  14. PEPCID [Concomitant]
     Indication: GASTROOESOPHAGEAL REFLUX DISEASE
     Route: 048
     Dates: start: 20070911
  15. TRIAMCINOLONE ACETONIDE [Concomitant]
     Route: 061
     Dates: start: 20111129, end: 20111215
  16. FOLIC ACID [Concomitant]
     Route: 048
     Dates: start: 20120418
  17. ACETAMINOPHEN [Concomitant]
     Route: 048
     Dates: start: 20131112

REACTIONS (1)
  - Pancreatitis acute [Recovered/Resolved]
